FAERS Safety Report 5865901-6 (Version None)
Quarter: 2008Q3

REPORT INFORMATION
  Report Type: 
  Country: None (occurrence: None)
  Receive Date: 20080829
  Receipt Date: 20080822
  Transmission Date: 20090109
  Serious: Yes (Hospitalization, Disabling)
  Sender: FDA-Public Use
  Company Number: DE-AMGEN-US273690

PATIENT
  Sex: Male
  Weight: 78 kg

DRUGS (5)
  1. ENBREL [Suspect]
     Indication: RHEUMATOID ARTHRITIS
     Route: 058
     Dates: start: 20050101, end: 20071201
  2. URBASON [Concomitant]
     Route: 065
  3. DICLOFENAC [Concomitant]
     Route: 065
  4. ALLOPURINOL [Concomitant]
  5. RANTUDIL - SLOW RELEASE [Concomitant]
     Route: 065

REACTIONS (3)
  - APHASIA [None]
  - GRAND MAL CONVULSION [None]
  - MYASTHENIA GRAVIS [None]
